FAERS Safety Report 5622466-1 (Version None)
Quarter: 2008Q1

REPORT INFORMATION
  Report Type: 
  Country: None (occurrence: None)
  Receive Date: 20080114
  Receipt Date: 20070914
  Transmission Date: 20080703
  Serious: Yes (Life-Threatening, Hospitalization)
  Sender: FDA-Public Use
  Company Number: A03200705575

PATIENT
  Age: 77 Year
  Sex: Male

DRUGS (18)
  1. PLAVIX [Suspect]
     Indication: CORONARY ARTERY BYPASS
     Dosage: 75 MG QD - ORAL
     Route: 048
     Dates: end: 20070913
  2. IPRATROPIUM BROMIDE [Concomitant]
  3. ALBUTEROL [Concomitant]
  4. HEPARIN [Concomitant]
  5. PHENYTOIN SODIUM [Concomitant]
  6. METHYLPREDNISOLONE SODIUM SUCCINATE [Concomitant]
  7. ACETYLSALICYLIC ACID SRT [Concomitant]
  8. AMLODIPINE BESILATE [Concomitant]
  9. METOPROLOL SUCCINATE [Concomitant]
  10. PRAVASTATIN SODIUM [Concomitant]
  11. PARACETAMOL [Concomitant]
  12. ALMINIUM HYDROXIDE+MAGNESIUM HYDROXIDE [Concomitant]
  13. MILK OF MAGNESIA [Concomitant]
  14. ZOLPIDEM TARTRATE [Concomitant]
  15. DOCUSATE SODIUM [Concomitant]
  16. DIPHENHYDRAMINE HYDROCHLORIDE [Concomitant]
  17. ESOMEPRAZOLE [Concomitant]
  18. LISINOPRIL [Concomitant]

REACTIONS (4)
  - ANAPHYLACTIC REACTION [None]
  - ANGIOEDEMA [None]
  - LOCAL SWELLING [None]
  - PHARYNGEAL OEDEMA [None]
